FAERS Safety Report 10902584 (Version 1)
Quarter: 2015Q1

REPORT INFORMATION
  Report Type: Report from Study
  Country: CZ (occurrence: CZ)
  Receive Date: 20150310
  Receipt Date: 20150310
  Transmission Date: 20150721
  Serious: Yes (Hospitalization)
  Sender: FDA-Public Use
  Company Number: CZ-ABBVIE-15P-217-1355837-00

PATIENT
  Sex: Female
  Weight: 27.5 kg

DRUGS (6)
  1. HUMIRA [Suspect]
     Active Substance: ADALIMUMAB
     Route: 058
     Dates: start: 20150217
  2. ENTIZOL [Concomitant]
     Indication: CROHN^S DISEASE
     Route: 048
     Dates: start: 20141117, end: 20141210
  3. MODULEN [Concomitant]
     Indication: CROHN^S DISEASE
     Dosage: 1500-2000ML
     Route: 048
     Dates: start: 20140910, end: 20141029
  4. AZATHIOPRINE. [Concomitant]
     Active Substance: AZATHIOPRINE
     Indication: PRODUCT USED FOR UNKNOWN INDICATION
     Dates: start: 20130416, end: 20130416
  5. AZATHIOPRINE. [Concomitant]
     Active Substance: AZATHIOPRINE
     Dates: start: 20141016, end: 20150115
  6. HUMIRA [Suspect]
     Active Substance: ADALIMUMAB
     Indication: CROHN^S DISEASE
     Route: 058
     Dates: start: 20150115, end: 20150129

REACTIONS (4)
  - Localised oedema [Recovered/Resolved]
  - Abdominal distension [Recovered/Resolved]
  - Decreased appetite [Recovered/Resolved]
  - Weight increased [Recovered/Resolved]

NARRATIVE: CASE EVENT DATE: 20150201
